FAERS Safety Report 4613211-7 (Version None)
Quarter: 2005Q1

REPORT INFORMATION
  Report Type: 
  Country: None (occurrence: None)
  Receive Date: 20050315
  Receipt Date: 20050302
  Transmission Date: 20050727
  Serious: Yes (Hospitalization)
  Sender: FDA-Public Use
  Company Number: 2005040041

PATIENT
  Sex: Male

DRUGS (1)
  1. CABERGOLINE [Suspect]
     Indication: PARKINSON'S DISEASE
     Dosage: ORAL
     Route: 048

REACTIONS (2)
  - DYSPNOEA [None]
  - FALL [None]
